FAERS Safety Report 16140556 (Version 1)
Quarter: 2019Q2

REPORT INFORMATION
  Report Type: Spontaneous
  Country: JP (occurrence: JP)
  Receive Date: 20190401
  Receipt Date: 20190401
  Transmission Date: 20190711
  Serious: Yes (Other)
  Sender: FDA-Public Use
  Company Number: JP-GLAXOSMITHKLINE-JP2019057302

PATIENT
  Sex: Male

DRUGS (1)
  1. VOLTAREN [Suspect]
     Active Substance: DICLOFENAC SODIUM
     Indication: BACK PAIN
     Dosage: 4 DF, QD (3 TO 4 TABLETS DAILY, 2 TABLETS PER ADMINISTRATION AT THE TIME OF PAIN)
     Route: 048

REACTIONS (3)
  - Oedema peripheral [Unknown]
  - Weight increased [Unknown]
  - Renal impairment [Unknown]
